FAERS Safety Report 12881541 (Version 3)
Quarter: 2018Q1

REPORT INFORMATION
  Report Type: Spontaneous
  Country: US (occurrence: US)
  Receive Date: 20161025
  Receipt Date: 20180118
  Transmission Date: 20180508
  Serious: No
  Sender: FDA-Public Use
  Company Number: US-JNJFOC-20161009321

PATIENT
  Sex: Male

DRUGS (5)
  1. ADDERALL [Suspect]
     Active Substance: AMPHETAMINE ASPARTATE\AMPHETAMINE SULFATE\DEXTROAMPHETAMINE SACCHARATE\DEXTROAMPHETAMINE SULFATE
     Indication: PRODUCT USED FOR UNKNOWN INDICATION
     Route: 065
  2. RISPERDAL [Suspect]
     Active Substance: RISPERIDONE
     Indication: AGGRESSION
     Dosage: V3:??VARYING DOSES OF 0.5 MG AND 0.25 MG.
     Route: 048
     Dates: start: 20041220, end: 20070906
  3. RISPERDAL [Suspect]
     Active Substance: RISPERIDONE
     Indication: DISTURBANCE IN SOCIAL BEHAVIOUR
     Dosage: V3:??VARYING DOSES OF 0.5 MG AND 0.25 MG.
     Route: 048
     Dates: start: 20041220, end: 20070906
  4. RISPERDAL [Suspect]
     Active Substance: RISPERIDONE
     Indication: IRRITABILITY
     Dosage: V3:??VARYING DOSES OF 0.5 MG AND 0.25 MG.
     Route: 048
     Dates: start: 20041220, end: 20070906
  5. RISPERDAL [Suspect]
     Active Substance: RISPERIDONE
     Indication: AFFECT LABILITY
     Dosage: V3:??VARYING DOSES OF 0.5 MG AND 0.25 MG.
     Route: 048
     Dates: start: 20041220, end: 20070906

REACTIONS (3)
  - Obesity [Unknown]
  - Emotional distress [Unknown]
  - Gynaecomastia [Unknown]

NARRATIVE: CASE EVENT DATE: 2006
